FAERS Safety Report 23758110 (Version 1)
Quarter: 2024Q2

REPORT INFORMATION
  Report Type: Spontaneous
  Country: US (occurrence: US)
  Receive Date: 20240418
  Receipt Date: 20240418
  Transmission Date: 20240716
  Serious: No
  Sender: FDA-Public Use
  Company Number: US-BRISTOL-MYERS SQUIBB COMPANY-2024-060640

PATIENT
  Age: 86 Year
  Sex: Male
  Weight: 83.91 kg

DRUGS (2)
  1. ELIQUIS [Suspect]
     Active Substance: APIXABAN
     Indication: Thrombosis prophylaxis
     Route: 048
     Dates: end: 20240412
  2. ELIQUIS [Suspect]
     Active Substance: APIXABAN
     Indication: Atrial flutter
     Route: 048

REACTIONS (5)
  - Swelling face [Recovering/Resolving]
  - Rash [Unknown]
  - Eye pruritus [Unknown]
  - Rash pruritic [Recovered/Resolved]
  - Off label use [Unknown]

NARRATIVE: CASE EVENT DATE: 20240401
